FAERS Safety Report 8603077-2 (Version None)
Quarter: 2012Q3

REPORT INFORMATION
  Report Type: 
  Country: None (occurrence: None)
  Receive Date: 20120817
  Receipt Date: 20120807
  Transmission Date: 20120928
  Serious: Yes (Other)
  Sender: FDA-Public Use
  Company Number: US-ABBOTT-12P-163-0966116-00

PATIENT
  Sex: Female
  Weight: 86.26 kg

DRUGS (7)
  1. HUMIRA [Suspect]
     Indication: RHEUMATOID ARTHRITIS
     Dates: start: 20120501
  2. NORVASC [Concomitant]
     Indication: HYPERTENSION
  3. CALCIUM [Concomitant]
     Indication: MINERAL SUPPLEMENTATION
  4. METOPROLOL TARTRATE [Concomitant]
     Indication: HYPERTENSION
  5. DIOVAN [Concomitant]
     Indication: HYPERTENSION
  6. LANSOPRAZOLE [Concomitant]
     Indication: GASTROOESOPHAGEAL REFLUX DISEASE
  7. VENLAFAXINE [Concomitant]
     Indication: DEPRESSION

REACTIONS (2)
  - CARPAL TUNNEL SYNDROME [None]
  - TOOTH INFECTION [None]
